FAERS Safety Report 20903778 (Version 2)
Quarter: 2022Q3

REPORT INFORMATION
  Report Type: Spontaneous
  Country: US (occurrence: US)
  Receive Date: 20220602
  Receipt Date: 20220712
  Transmission Date: 20221027
  Serious: No
  Sender: FDA-Public Use
  Company Number: US-UCBSA-2022030813

PATIENT
  Age: 68 Year
  Sex: Male

DRUGS (1)
  1. NEUPRO [Suspect]
     Active Substance: ROTIGOTINE
     Indication: Restless legs syndrome
     Dosage: 8 MILLIGRAM, ONCE DAILY (QD)
     Dates: start: 20220509

REACTIONS (5)
  - Drug ineffective [Unknown]
  - Product adhesion issue [Unknown]
  - Product prescribing error [Unknown]
  - Prescribed overdose [Unknown]
  - Product use issue [Unknown]

NARRATIVE: CASE EVENT DATE: 20220509
